FAERS Safety Report 16497854 (Version 2)
Quarter: 2019Q3

REPORT INFORMATION
  Report Type: Spontaneous
  Country: US (occurrence: US)
  Receive Date: 20190628
  Receipt Date: 20190726
  Transmission Date: 20191004
  Serious: No
  Sender: FDA-Public Use
  Company Number: US-PFIZER INC-2019273867

PATIENT
  Age: 61 Year
  Sex: Female

DRUGS (2)
  1. OLUMIANT [Concomitant]
     Active Substance: BARICITINIB
     Dosage: UNK
  2. XELJANZ XR [Suspect]
     Active Substance: TOFACITINIB CITRATE
     Indication: RHEUMATOID ARTHRITIS
     Dosage: 11 MG, DAILY
     Route: 048
     Dates: start: 201905

REACTIONS (5)
  - Alopecia [Unknown]
  - Pain [Unknown]
  - Constipation [Unknown]
  - Loss of personal independence in daily activities [Unknown]
  - Swelling [Recovering/Resolving]

NARRATIVE: CASE EVENT DATE: 2019
